FAERS Safety Report 14482806 (Version 2)
Quarter: 2018Q1

REPORT INFORMATION
  Report Type: Other
  Country: ES (occurrence: ES)
  Receive Date: 20180203
  Receipt Date: 20180221
  Transmission Date: 20180509
  Serious: Yes (Other)
  Sender: FDA-Public Use
  Company Number: ES-MACLEODS PHARMACEUTICALS US LTD-MAC2018009155

PATIENT

DRUGS (12)
  1. ACENOCOUMAROL [Interacting]
     Active Substance: ACENOCOUMAROL
     Dosage: 3 MG, UNK, EVERY WEEK, 0.25 MG EVERY 24 HOURS WITH SUBSEQUENT INCREASE TO 0.5 MG EVERY 24 HOURS ON
     Route: 048
     Dates: start: 20040917, end: 20170127
  2. PARACETAMOL [Concomitant]
     Active Substance: ACETAMINOPHEN
     Indication: PRODUCT USED FOR UNKNOWN INDICATION
     Dosage: 1 GR EVERY 8 HOURS
     Route: 065
     Dates: start: 20170125, end: 20170218
  3. ACENOCOUMAROL [Interacting]
     Active Substance: ACENOCOUMAROL
     Indication: ATRIAL FIBRILLATION
     Dosage: 0.25 MG, QD EVERY 24 HOURS WITH SUBSEQUENT INCREASE TO 0.5 MG EVERY 24 HOURS ON 26 JAN 2017
     Route: 048
     Dates: start: 20170125, end: 20170125
  4. PANTOPRAZOLE [Interacting]
     Active Substance: PANTOPRAZOLE
     Dosage: 20 MG, QD, 40 MG EVERY 24 HOURS WITH SUBSEQUENT REDUCTION OF THE DOSE TO 20 MG EVERY 24 HOURS
     Route: 065
     Dates: start: 20170126, end: 20170216
  5. AMOXICILLIN/CLAVULANATE POTASSIUM INJECTION [Interacting]
     Active Substance: AMOXICILLIN\CLAVULANATE POTASSIUM
     Dosage: 875 MG, TID, 1 GR EVERY 8 HOURS WITH SUBSEQUENT DOSE REDUCTION TO 875 GR EVERY 8 HOURS ON 01/30/2017
     Route: 042
     Dates: start: 20170130, end: 20170208
  6. ACENOCOUMAROL [Interacting]
     Active Substance: ACENOCOUMAROL
     Dosage: 0.5 MG, QD
     Route: 048
     Dates: start: 20170126, end: 20170127
  7. DIGOXIN. [Concomitant]
     Active Substance: DIGOXIN
     Indication: PRODUCT USED FOR UNKNOWN INDICATION
     Dosage: 0.125 MG, QD
     Route: 065
     Dates: start: 20170126, end: 20170131
  8. LORAZEPAM. [Concomitant]
     Active Substance: LORAZEPAM
     Indication: PRODUCT USED FOR UNKNOWN INDICATION
     Dosage: 0.5 MG, QD
     Route: 065
     Dates: start: 20170125
  9. LORAZEPAM. [Concomitant]
     Active Substance: LORAZEPAM
     Dosage: 1 MG, QD
     Route: 065
     Dates: start: 20170125, end: 20170217
  10. PANTOPRAZOLE [Suspect]
     Active Substance: PANTOPRAZOLE
     Indication: PRODUCT USED FOR UNKNOWN INDICATION
     Dosage: 40 MG, QD
     Route: 065
     Dates: start: 20170125, end: 20170125
  11. AMOXICILLIN/CLAVULANATE POTASSIUM INJECTION [Interacting]
     Active Substance: AMOXICILLIN\CLAVULANATE POTASSIUM
     Indication: PNEUMONIA
     Dosage: 1 G, TID
     Route: 042
     Dates: start: 20170125, end: 20170129
  12. AMBROXOL [Concomitant]
     Active Substance: AMBROXOL
     Indication: PRODUCT USED FOR UNKNOWN INDICATION
     Dosage: 15 MG, TID, EVERY 8 HOUR
     Route: 065
     Dates: start: 20170125, end: 20170217

REACTIONS (2)
  - Drug interaction [Unknown]
  - Hypocoagulable state [Recovered/Resolved]

NARRATIVE: CASE EVENT DATE: 20170127
